FAERS Safety Report 10901725 (Version 1)
Quarter: 2015Q1

REPORT INFORMATION
  Report Type: Report from Study
  Country: US (occurrence: US)
  Receive Date: 20150310
  Receipt Date: 20150310
  Transmission Date: 20150721
  Serious: Yes (Hospitalization, Other)
  Sender: FDA-Public Use
  Company Number: US-GILEAD-2015-0141193

PATIENT
  Age: 51 Year
  Sex: Female

DRUGS (22)
  1. AMBRISENTAN [Suspect]
     Active Substance: AMBRISENTAN
     Indication: PULMONARY HYPERTENSION
     Dosage: 5 MG, QD
     Route: 065
     Dates: start: 20120217
  2. LEVETIRACETAM. [Concomitant]
     Active Substance: LEVETIRACETAM
  3. ENABLEX [Concomitant]
     Active Substance: DARIFENACIN\DARIFENACIN HYDROBROMIDE
  4. BISACODYL. [Concomitant]
     Active Substance: BISACODYL
  5. VALPROIC ACID. [Concomitant]
     Active Substance: VALPROIC ACID
  6. PHENYTOIN. [Concomitant]
     Active Substance: PHENYTOIN
  7. NEURONTIN [Concomitant]
     Active Substance: GABAPENTIN
  8. DEPAKOTE [Concomitant]
     Active Substance: DIVALPROEX SODIUM
  9. THERAGRAN-M                        /07499601/ [Concomitant]
  10. ASCORBIC ACID. [Concomitant]
     Active Substance: ASCORBIC ACID
  11. LASIX [Concomitant]
     Active Substance: FUROSEMIDE
  12. VITAMIN D                          /00107901/ [Concomitant]
     Active Substance: ERGOCALCIFEROL
  13. IPRATROPIUM BROMIDE. [Concomitant]
     Active Substance: IPRATROPIUM BROMIDE
  14. ACYCLOVIR                          /00587301/ [Concomitant]
     Active Substance: ACYCLOVIR
  15. LEVOTHYROXINE [Concomitant]
     Active Substance: LEVOTHYROXINE
  16. ZYVOX [Concomitant]
     Active Substance: LINEZOLID
  17. METHENAMINE [Concomitant]
     Active Substance: METHENAMINE
  18. MORPHINE SULFATE. [Concomitant]
     Active Substance: MORPHINE SULFATE
  19. ZOLOFT [Concomitant]
     Active Substance: SERTRALINE HYDROCHLORIDE
  20. BACTRIM [Concomitant]
     Active Substance: SULFAMETHOXAZOLE\TRIMETHOPRIM
  21. BACLOFEN. [Concomitant]
     Active Substance: BACLOFEN
  22. FAMOTIDINE. [Concomitant]
     Active Substance: FAMOTIDINE

REACTIONS (1)
  - Suicide attempt [Recovered/Resolved]

NARRATIVE: CASE EVENT DATE: 20150221
